FAERS Safety Report 6333986-9 (Version None)
Quarter: 2009Q3

REPORT INFORMATION
  Report Type: 
  Country: None (occurrence: None)
  Receive Date: 20090829
  Receipt Date: 20090706
  Transmission Date: 20100115
  Serious: No
  Sender: FDA-Public Use
  Company Number: US-ABBOTT-09P-163-0584091-00

PATIENT
  Sex: Male
  Weight: 111.23 kg

DRUGS (6)
  1. SIMCOR [Suspect]
     Indication: BLOOD CHOLESTEROL INCREASED
     Dosage: 500/20MG
     Dates: start: 20090615
  2. ACTOPLUS MET [Concomitant]
     Indication: DRUG USE FOR UNKNOWN INDICATION
  3. DISTOLIC [Concomitant]
     Indication: DRUG USE FOR UNKNOWN INDICATION
  4. ISTOLOL [Concomitant]
     Indication: GLAUCOMA
  5. XALANTAL [Concomitant]
     Indication: GLAUCOMA
  6. XANAX [Concomitant]
     Indication: DRUG USE FOR UNKNOWN INDICATION

REACTIONS (1)
  - MYALGIA [None]
